FAERS Safety Report 8079886-8 (Version None)
Quarter: 2012Q1

REPORT INFORMATION
  Report Type: 
  Country: None (occurrence: None)
  Receive Date: 20120128
  Receipt Date: 20110825
  Transmission Date: 20120608
  Serious: No
  Sender: FDA-Public Use
  Company Number: US-ABBOTT-11P-163-0841054-00

PATIENT
  Sex: Male
  Weight: 103.97 kg

DRUGS (3)
  1. HUMIRA [Suspect]
     Indication: RHEUMATOID ARTHRITIS
     Route: 058
  2. HUMIRA [Suspect]
     Indication: PSORIASIS
  3. UNKNOWN TOPICAL MEDICATION [Concomitant]
     Indication: PRODUCT USED FOR UNKNOWN INDICATION

REACTIONS (7)
  - EXCORIATION [None]
  - RASH MACULAR [None]
  - DRUG DOSE OMISSION [None]
  - PSORIASIS [None]
  - RHEUMATOID ARTHRITIS [None]
  - DEVICE MALFUNCTION [None]
  - PAIN IN EXTREMITY [None]
